FAERS Safety Report 11809871 (Version 2)
Quarter: 2016Q1

REPORT INFORMATION
  Report Type: Spontaneous
  Country: US (occurrence: US)
  Receive Date: 20151208
  Receipt Date: 20160101
  Transmission Date: 20160525
  Serious: Yes (Hospitalization, Other)
  Sender: FDA-Public Use
  Company Number: US-ACCORD-036047

PATIENT
  Age: 55 Year
  Sex: Female

DRUGS (28)
  1. ESTRADIOL. [Concomitant]
     Active Substance: ESTRADIOL
  2. PILOCARPINE. [Concomitant]
     Active Substance: PILOCARPINE
  3. GABAPENTIN. [Concomitant]
     Active Substance: GABAPENTIN
  4. GUAIFENESIN. [Concomitant]
     Active Substance: GUAIFENESIN
  5. BISOPROLOL FUMARATE/HYDROCHLOROTHIAZIDE [Concomitant]
  6. FUROSEMIDE. [Concomitant]
     Active Substance: FUROSEMIDE
  7. OMEPRAZOLE. [Concomitant]
     Active Substance: OMEPRAZOLE
  8. CALCIUM GLUCONATE. [Concomitant]
     Active Substance: CALCIUM GLUCONATE
  9. PROMETHAZINE [Concomitant]
     Active Substance: PROMETHAZINE\PROMETHAZINE HYDROCHLORIDE
  10. ALUMINIUM HYDROXIDE/MAGNESIUM HYDROXIDE [Concomitant]
  11. PRASTERONE [Concomitant]
     Active Substance: PRASTERONE
  12. CHLORZOXAZONE. [Concomitant]
     Active Substance: CHLORZOXAZONE
  13. MORPHINE [Concomitant]
     Active Substance: MORPHINE
  14. TRAZODONE [Concomitant]
     Active Substance: TRAZODONE HYDROCHLORIDE
  15. METFORMIN [Concomitant]
     Active Substance: METFORMIN HYDROCHLORIDE
  16. COLECALCIFEROL [Concomitant]
     Active Substance: CHOLECALCIFEROL
  17. ZINC [Concomitant]
     Active Substance: ZINC\ZINC CHLORIDE
  18. LEVOTHYROXINE. [Concomitant]
     Active Substance: LEVOTHYROXINE
  19. PANCREATIN [Concomitant]
     Active Substance: PANCRELIPASE
  20. ETANERCEPT [Suspect]
     Active Substance: ETANERCEPT
     Indication: RHEUMATOID ARTHRITIS
     Route: 058
     Dates: start: 201010
  21. ZAFIRLUKAST. [Concomitant]
     Active Substance: ZAFIRLUKAST
  22. POTASSIUM [Concomitant]
     Active Substance: POTASSIUM
  23. FOLIC ACID. [Concomitant]
     Active Substance: FOLIC ACID
  24. METHOTREXATE [Suspect]
     Active Substance: METHOTREXATE
     Indication: RHEUMATOID ARTHRITIS
     Route: 058
  25. INSULIN DETEMIR [Concomitant]
     Active Substance: INSULIN DETEMIR
  26. MILK THISTLE SEED EXTRACT [Concomitant]
  27. CICLOSPORIN [Concomitant]
     Active Substance: CYCLOSPORINE
     Dosage: OCULAR CYCLOSPORINE DROPS
  28. TEMAZEPAM. [Concomitant]
     Active Substance: TEMAZEPAM

REACTIONS (8)
  - Rhabdomyolysis [Unknown]
  - Hypertension [Unknown]
  - Pneumonia [Recovered/Resolved]
  - Posterior reversible encephalopathy syndrome [Unknown]
  - Cellulitis [Recovered/Resolved]
  - Hyperammonaemia [Unknown]
  - Pasteurella infection [Recovered/Resolved]
  - Mental status changes [Unknown]

NARRATIVE: CASE EVENT DATE: 201204
